FAERS Safety Report 7120738-5 (Version None)
Quarter: 2010Q4

REPORT INFORMATION
  Report Type: 
  Country: None (occurrence: None)
  Receive Date: 20101117
  Receipt Date: 20101117
  Transmission Date: 20110411
  Serious: Yes (Other)
  Sender: FDA-Public Use
  Company Number: None

PATIENT
  Age: 53 Year
  Sex: Female

DRUGS (1)
  1. LANTUS [Suspect]
     Indication: DIABETES MELLITUS
     Dosage: INJECT UNDER THE SKIN DAILY
     Route: 058

REACTIONS (2)
  - DEVICE MALFUNCTION [None]
  - DRUG DOSE OMISSION [None]
